FAERS Safety Report 13881601 (Version 1)
Quarter: 2017Q3

REPORT INFORMATION
  Report Type: Spontaneous
  Country: US (occurrence: US)
  Receive Date: 20170818
  Receipt Date: 20170818
  Transmission Date: 20171127
  Serious: Yes (Hospitalization)
  Sender: FDA-Public Use
  Company Number: US-ELI_LILLY_AND_COMPANY-US201607012543

PATIENT
  Age: 85 Year
  Sex: Female

DRUGS (2)
  1. CYMBALTA [Suspect]
     Active Substance: DULOXETINE HYDROCHLORIDE
     Indication: PRODUCT USED FOR UNKNOWN INDICATION
     Dosage: 60 MG, EACH EVENING
     Route: 048
     Dates: start: 20130903, end: 201310
  2. EXELON [Suspect]
     Active Substance: RIVASTIGMINE TARTRATE
     Indication: PRODUCT USED FOR UNKNOWN INDICATION
     Dosage: 4.6 MG, DAILY
     Route: 062
     Dates: start: 20130903

REACTIONS (7)
  - Dystonia [Unknown]
  - Sinus tachycardia [Unknown]
  - Metabolic encephalopathy [Unknown]
  - Atrial fibrillation [Unknown]
  - Myocardial necrosis marker increased [Unknown]
  - Ventricular extrasystoles [Unknown]
  - Drug withdrawal syndrome [Unknown]

NARRATIVE: CASE EVENT DATE: 201310
